FAERS Safety Report 5451861-9 (Version None)
Quarter: 2007Q3

REPORT INFORMATION
  Report Type: 
  Country: None (occurrence: None)
  Receive Date: 20070912
  Receipt Date: 20070830
  Transmission Date: 20080115
  Serious: Yes (Other)
  Sender: FDA-Public Use
  Company Number: 2007S1008382

PATIENT
  Age: 27 Year
  Sex: Female

DRUGS (1)
  1. MERCAPTAMINE BITARTRATE (MERCAPTAMINE BITARTRATE) (150 MG) [Suspect]
     Indication: CYSTINOSIS
     Dosage: DAILY; ORAL
     Route: 048

REACTIONS (1)
  - DIABETES MELLITUS [None]
